FAERS Safety Report 4655798-4 (Version None)
Quarter: 2005Q2

REPORT INFORMATION
  Report Type: 
  Country: None (occurrence: None)
  Receive Date: 20050507
  Receipt Date: 20050428
  Transmission Date: 20051028
  Serious: Yes (Other)
  Sender: FDA-Public Use
  Company Number: GB-MERCK-0504USA05036

PATIENT
  Age: 68 Year
  Sex: Male
  Weight: 66 kg

DRUGS (2)
  1. PRINZIDE [Suspect]
     Indication: HYPERTENSION
     Route: 048
     Dates: start: 20050128, end: 20050302
  2. HYDROCHLOROTHIAZIDE AND LISINOPRIL [Suspect]
     Indication: HYPERTENSION
     Route: 065

REACTIONS (2)
  - BLOOD PRESSURE INCREASED [None]
  - DRUG INEFFECTIVE [None]
